FAERS Safety Report 8185493-9 (Version None)
Quarter: 2012Q1

REPORT INFORMATION
  Report Type: 
  Country: None (occurrence: None)
  Receive Date: 20120305
  Receipt Date: 20120222
  Transmission Date: 20120608
  Serious: Yes (Death)
  Sender: FDA-Public Use
  Company Number: DE-FRI-1000024070

PATIENT
  Age: 41 Year
  Sex: Male
  Weight: 85 kg

DRUGS (2)
  1. CITALOPRAM HYDROBROMIDE [Suspect]
     Indication: DEPRESSION
     Dosage: 10 MG
     Route: 048
     Dates: start: 20110307, end: 20110309
  2. ZOPICLON [Concomitant]
     Indication: SLEEP DISORDER
     Dosage: 7.5 MG AS NEEDED, NO REGULAR INTAKE
     Route: 048
     Dates: start: 20110303, end: 20110307

REACTIONS (3)
  - COMPLETED SUICIDE [None]
  - ABDOMINAL DISCOMFORT [None]
  - RESTLESSNESS [None]
